FAERS Safety Report 13355645 (Version 1)
Quarter: 2017Q1

REPORT INFORMATION
  Report Type: Spontaneous
  Country: DZ (occurrence: DZ)
  Receive Date: 20170321
  Receipt Date: 20170321
  Transmission Date: 20170429
  Serious: Yes (Other)
  Sender: FDA-Public Use
  Company Number: DZ-BAYER-2017-049913

PATIENT
  Age: 60 Year
  Sex: Male

DRUGS (2)
  1. SORAFENIB (RAF KINASE INHIBITOR) [Suspect]
     Active Substance: SORAFENIB
     Indication: METASTATIC RENAL CELL CARCINOMA
  2. SUNITINIB [Concomitant]
     Active Substance: SUNITINIB
     Indication: RENAL CELL CARCINOMA
     Dosage: 50 MG, 1X/DAY 2 WEEKS ON AND 1 WEEK OFF
     Dates: start: 201301

REACTIONS (3)
  - Metastases to lung [None]
  - Palmar-plantar erythrodysaesthesia syndrome [None]
  - Metastatic renal cell carcinoma [None]
